FAERS Safety Report 17266473 (Version 5)
Quarter: 2020Q4

REPORT INFORMATION
  Report Type: Report from Study
  Country: US (occurrence: US)
  Receive Date: 20200114
  Receipt Date: 20201102
  Transmission Date: 20210113
  Serious: Yes (Death, Life-Threatening, Other)
  Sender: FDA-Public Use
  Company Number: NVSC2020US005002

PATIENT
  Age: 15 Year
  Sex: Female
  Weight: 38 kg

DRUGS (3)
  1. FLUDARABINE [Concomitant]
     Active Substance: FLUDARABINE PHOSPHATE
     Indication: CHEMOTHERAPY
     Dosage: UNK
     Route: 065
  2. CYCLOPHOSPHAMIDE. [Concomitant]
     Active Substance: CYCLOPHOSPHAMIDE
     Indication: CHEMOTHERAPY
     Dosage: UNK
     Route: 065
  3. KYMRIAH [Suspect]
     Active Substance: TISAGENLECLEUCEL
     Indication: B-CELL TYPE ACUTE LEUKAEMIA
     Dosage: 1 ML, ONCE/SINGLE (2.6E6 CAR-POSITIVE VIABLE T CELLS/KG BODY WEIGHT).
     Route: 042
     Dates: start: 20191210

REACTIONS (19)
  - Metabolic disorder [Fatal]
  - Cardiac failure [Unknown]
  - Fungal infection [Unknown]
  - Pyrexia [Unknown]
  - Acute respiratory distress syndrome [Unknown]
  - Neutrophil count decreased [Unknown]
  - Platelet count decreased [Unknown]
  - Pseudomonas infection [Unknown]
  - Septic shock [Fatal]
  - Cytokine release syndrome [Recovered/Resolved]
  - Multiple organ dysfunction syndrome [Fatal]
  - Respiratory failure [Unknown]
  - Bacterial infection [Unknown]
  - Haematocrit decreased [Unknown]
  - Haemoglobin decreased [Unknown]
  - Renal failure [Unknown]
  - Bacterial sepsis [Fatal]
  - Hypogammaglobulinaemia [Unknown]
  - White blood cell count decreased [Unknown]

NARRATIVE: CASE EVENT DATE: 20200109
